FAERS Safety Report 10718624 (Version 2)
Quarter: 2015Q1

REPORT INFORMATION
  Report Type: Spontaneous
  Country: US (occurrence: US)
  Receive Date: 20150119
  Receipt Date: 20150119
  Transmission Date: 20150721
  Serious: No
  Sender: FDA-Public Use
  Company Number: US-UNITED THERAPEUTICS-UNT-2014-001511

PATIENT
  Age: 61 Year
  Sex: Female
  Weight: 52.15 kg

DRUGS (2)
  1. REMODULIN [Suspect]
     Active Substance: TREPROSTINIL
     Indication: PULMONARY HYPERTENSION
     Dosage: 0.012 ?G/KG/MIN, CONTINUING
     Route: 058
     Dates: start: 20140517
  2. ADCIRCA [Concomitant]
     Active Substance: TADALAFIL
     Indication: PRODUCT USED FOR UNKNOWN INDICATION

REACTIONS (10)
  - Infusion site reaction [Unknown]
  - Anxiety [Unknown]
  - Dyspnoea exertional [Unknown]
  - Infusion site oedema [Unknown]
  - Headache [Unknown]
  - Pain in extremity [Unknown]
  - Arthralgia [Unknown]
  - Oedema peripheral [Unknown]
  - Infusion site pain [Unknown]
  - Infusion site erythema [Unknown]

NARRATIVE: CASE EVENT DATE: 2014
